FAERS Safety Report 23181481 (Version 3)
Quarter: 2023Q4

REPORT INFORMATION
  Report Type: Spontaneous
  Country: HR (occurrence: HR)
  Receive Date: 20231114
  Receipt Date: 20231129
  Transmission Date: 20240109
  Serious: Yes (Hospitalization, Other)
  Sender: FDA-Public Use
  Company Number: HR-ALKALOID-2023HQ23821

PATIENT
  Age: 85 Year
  Sex: Female

DRUGS (3)
  1. BORTEZOMIB [Suspect]
     Active Substance: BORTEZOMIB
     Indication: Plasma cell myeloma
     Dosage: AT LEAST THREE 6-WEEK CYCLES ACCORDING VMP PROTOCOL FOR MULTIPLE MYELOMA
     Route: 065
  2. PREDNISONE [Suspect]
     Active Substance: PREDNISONE
     Indication: Plasma cell myeloma
     Dosage: AT LEAST THREE CYCLES ACCORDING VMP PROTOCOL FOR MULTIPLE MYELOMA
     Route: 065
  3. MELPHALAN [Suspect]
     Active Substance: MELPHALAN
     Indication: Plasma cell myeloma
     Dosage: AT LEAST THREE CYCLES ACCORDING VMP PROTOCOL FOR MULTIPLE MYELOMA
     Route: 065

REACTIONS (5)
  - Toxicity to various agents [Recovered/Resolved]
  - Pneumonia [Recovered/Resolved]
  - Deep vein thrombosis [Recovered/Resolved]
  - Treatment failure [Recovered/Resolved]
  - Therapy partial responder [Recovered/Resolved]
